FAERS Safety Report 20959352 (Version 1)
Quarter: 2022Q2

REPORT INFORMATION
  Report Type: Spontaneous
  Country: US (occurrence: US)
  Receive Date: 20220614
  Receipt Date: 20220614
  Transmission Date: 20220721
  Serious: Yes (Hospitalization)
  Sender: FDA-Public Use
  Company Number: US-PFIZER INC-PV202200001256

PATIENT
  Age: 88 Year
  Sex: Male

DRUGS (1)
  1. VYNDAMAX [Interacting]
     Active Substance: TAFAMIDIS
     Dosage: 61 MG
     Dates: end: 20220602

REACTIONS (1)
  - Drug interaction [Unknown]
